FAERS Safety Report 18237626 (Version 1)
Quarter: 2020Q3

REPORT INFORMATION
  Report Type: Spontaneous
  Country: CA (occurrence: CA)
  Receive Date: 20200907
  Receipt Date: 20200907
  Transmission Date: 20201103
  Serious: Yes (Life-Threatening, Hospitalization)
  Sender: FDA-Public Use
  Company Number: CA-ACCORD-199482

PATIENT
  Age: 17 Year
  Sex: Male
  Weight: 69 kg

DRUGS (6)
  1. VINCRISTINE [Concomitant]
     Active Substance: VINCRISTINE
  2. PREDNISONE. [Concomitant]
     Active Substance: PREDNISONE
  3. MERCAPTOPURINE. [Suspect]
     Active Substance: MERCAPTOPURINE
     Indication: ACUTE LYMPHOCYTIC LEUKAEMIA
     Dosage: STRENGTH 50MG
     Route: 048
  4. METHOTREXATE. [Suspect]
     Active Substance: METHOTREXATE
     Indication: ACUTE LYMPHOCYTIC LEUKAEMIA
     Route: 048
  5. CLONAZEPAM. [Concomitant]
     Active Substance: CLONAZEPAM
  6. ESCITALOPRAM [Concomitant]
     Active Substance: ESCITALOPRAM OXALATE

REACTIONS (2)
  - Upper respiratory tract infection [Unknown]
  - Febrile neutropenia [Unknown]
